FAERS Safety Report 9160844 (Version 1)
Quarter: 2013Q1

REPORT INFORMATION
  Report Type: Spontaneous
  Country: CA (occurrence: None)
  Receive Date: 20130220
  Receipt Date: 20130220
  Transmission Date: 20140127
  Serious: Yes (Hospitalization)
  Sender: FDA-Public Use
  Company Number: CA-010897

PATIENT
  Sex: Male

DRUGS (1)
  1. FIRMAGON/01764801/(FIRMAGON) (240 MG, 80MG) (NOT SPECIFIED) [Suspect]
     Indication: PROSTATE CANCER
     Dosage: (80MG 1X/MONTH SUBCUTANEOUS)
     Route: 058
     Dates: start: 201206

REACTIONS (3)
  - Nausea [None]
  - Asthenia [None]
  - Fall [None]
